FAERS Safety Report 12598939 (Version 3)
Quarter: 2016Q3

REPORT INFORMATION
  Report Type: Spontaneous
  Country: US (occurrence: US)
  Receive Date: 20160727
  Receipt Date: 20160808
  Transmission Date: 20161109
  Serious: No
  Sender: FDA-Public Use
  Company Number: US-BEH-2016062394

PATIENT
  Sex: Female
  Weight: 38 kg

DRUGS (27)
  1. VYVANSE [Concomitant]
     Active Substance: LISDEXAMFETAMINE DIMESYLATE
  2. AFRIN [Concomitant]
     Active Substance: OXYMETAZOLINE
  3. ONDANSETRON [Concomitant]
     Active Substance: ONDANSETRON
  4. ADVIL [Concomitant]
     Active Substance: IBUPROFEN
  5. DIPHENHYDRAMINE. [Concomitant]
     Active Substance: DIPHENHYDRAMINE
  6. SODIUM CHLORIDE. [Concomitant]
     Active Substance: SODIUM CHLORIDE
  7. PANTOPRAZOLE [Concomitant]
     Active Substance: PANTOPRAZOLE SODIUM
  8. ADVAIR HFA [Concomitant]
     Active Substance: FLUTICASONE PROPIONATE\SALMETEROL XINAFOATE
  9. IBUPROFEN. [Concomitant]
     Active Substance: IBUPROFEN
  10. LIDOCAINE/PRILOCAINE [Concomitant]
     Active Substance: LIDOCAINE\PRILOCAINE
  11. EPIPEN [Concomitant]
     Active Substance: EPINEPHRINE
  12. HEPARIN [Concomitant]
     Active Substance: HEPARIN SODIUM
  13. FERROUS SULFATE. [Concomitant]
     Active Substance: FERROUS SULFATE
  14. ALBUTEROL. [Concomitant]
     Active Substance: ALBUTEROL
  15. HYDROCODONE BT-IBUPROFEN [Concomitant]
  16. HIZENTRA [Suspect]
     Active Substance: HUMAN IMMUNOGLOBULIN G
     Indication: IMMUNODEFICIENCY COMMON VARIABLE
     Route: 058
  17. NASONEX [Concomitant]
     Active Substance: MOMETASONE FUROATE
  18. CEFDINIR. [Concomitant]
     Active Substance: CEFDINIR
  19. NEOSPORIN [Concomitant]
     Active Substance: BACITRACIN ZINC\NEOMYCIN SULFATE\POLYMYXIN B SULFATE
  20. CYANOCOBALAMIN. [Concomitant]
     Active Substance: CYANOCOBALAMIN
  21. ACETYL L-CARNITINE [Concomitant]
     Active Substance: ACETYLCARNITINE
  22. CORTIZONE 10 [Concomitant]
     Active Substance: HYDROCORTISONE
  23. LIDOCAINE. [Concomitant]
     Active Substance: LIDOCAINE
  24. ABILIFY [Concomitant]
     Active Substance: ARIPIPRAZOLE
  25. TRIAMCINOLONE [Concomitant]
     Active Substance: TRIAMCINOLONE
  26. ZINC OXIDE OINT [Concomitant]
  27. COENZYME Q10 [Concomitant]
     Active Substance: UBIDECARENONE

REACTIONS (1)
  - Upper respiratory tract infection [Unknown]
